FAERS Safety Report 20612022 (Version 1)
Quarter: 2022Q1

REPORT INFORMATION
  Report Type: Spontaneous
  Country: SE (occurrence: SE)
  Receive Date: 20220318
  Receipt Date: 20220318
  Transmission Date: 20220423
  Serious: Yes (Hospitalization)
  Sender: FDA-Public Use
  Company Number: None

PATIENT
  Age: 48 Year
  Sex: Male
  Weight: 100 kg

DRUGS (4)
  1. DISULFIRAM [Suspect]
     Active Substance: DISULFIRAM
     Indication: Alcoholism
     Dosage: 200 MILLIGRAM DAILY; 200 MG, 200 MG DAILY
     Route: 048
     Dates: start: 20211229, end: 20220120
  2. NEBIDO [Concomitant]
     Active Substance: TESTOSTERONE UNDECANOATE
     Dosage: 1000 MG, 1 DOSE EVERY 10-14 WEEKS
     Route: 030
  3. Beviplex Comp [Concomitant]
     Dosage: 4 DOSAGE FORMS DAILY; 2 TABLETS TWICE DAILY
  4. NALTREXONE [Concomitant]
     Active Substance: NALTREXONE
     Dosage: 50 MILLIGRAM DAILY; 50 MG, 1 TABLET DAILY
     Dates: start: 20220104, end: 20220112

REACTIONS (1)
  - Hepatic enzyme increased [Recovered/Resolved]

NARRATIVE: CASE EVENT DATE: 20220120
